FAERS Safety Report 23506762 (Version 1)
Quarter: 2024Q1

REPORT INFORMATION
  Report Type: Other
  Country: ES (occurrence: ES)
  Receive Date: 20240209
  Receipt Date: 20240209
  Transmission Date: 20240410
  Serious: Yes (Hospitalization, Other)
  Sender: FDA-Public Use
  Company Number: ES-drreddys-SPO/SPN/23/0175496

PATIENT
  Age: 40 Year
  Sex: Female

DRUGS (8)
  1. FINGOLIMOD [Suspect]
     Active Substance: FINGOLIMOD
     Indication: Progressive multifocal leukoencephalopathy
  2. FINGOLIMOD [Suspect]
     Active Substance: FINGOLIMOD
     Indication: Relapsing-remitting multiple sclerosis
  3. COPAXONE [Suspect]
     Active Substance: GLATIRAMER ACETATE
     Indication: Multiple sclerosis
     Dosage: UNK
  4. METHYLPREDNISOLONE [Suspect]
     Active Substance: METHYLPREDNISOLONE
     Indication: Immune reconstitution inflammatory syndrome
     Dosage: 1 GRAM
  5. REBIF [Suspect]
     Active Substance: INTERFERON BETA-1A
     Indication: Multiple sclerosis
     Dosage: UNK
  6. MIRTAZAPINE [Concomitant]
     Active Substance: MIRTAZAPINE
     Indication: Immune reconstitution inflammatory syndrome
     Dosage: 15 MG PER DAY
  7. MEFLOQUINE HYDROCHLORIDE [Concomitant]
     Active Substance: MEFLOQUINE HYDROCHLORIDE
     Indication: Immune reconstitution inflammatory syndrome
     Dosage: 250 MG PER DAY
  8. LITHIUM [Concomitant]
     Active Substance: LITHIUM
     Indication: Bipolar disorder

REACTIONS (7)
  - Immune reconstitution inflammatory syndrome [Recovered/Resolved]
  - Progressive multifocal leukoencephalopathy [Recovered/Resolved]
  - Lymphopenia [Recovering/Resolving]
  - Drug withdrawal syndrome [Recovering/Resolving]
  - Drug ineffective [Unknown]
  - Hypersensitivity [Unknown]
  - Skin reaction [Unknown]
